FAERS Safety Report 22030257 (Version 1)
Quarter: 2023Q1

REPORT INFORMATION
  Report Type: Spontaneous
  Country: US (occurrence: US)
  Receive Date: 20230223
  Receipt Date: 20230223
  Transmission Date: 20230417
  Serious: No
  Sender: FDA-Public Use
  Company Number: US-PRIMUS-2022-US-014025

PATIENT
  Age: 77 Year
  Sex: Male

DRUGS (6)
  1. SERNIVO [Suspect]
     Active Substance: BETAMETHASONE DIPROPIONATE
     Indication: Skin irritation
     Dosage: APPLIED ONCE TO AFFECTED AREA(S) (PRESCRIBED FOR TWICE DAILY APPLICATION AS NEEDED)
     Route: 061
     Dates: start: 20220603
  2. ATENOLOL [Concomitant]
     Active Substance: ATENOLOL
  3. GLIPIZIDE\METFORMIN HYDROCHLORIDE [Concomitant]
     Active Substance: GLIPIZIDE\METFORMIN HYDROCHLORIDE
  4. RAMIPRIL [Concomitant]
     Active Substance: RAMIPRIL
  5. TESTOSTERONE [Concomitant]
     Active Substance: TESTOSTERONE
  6. ATORVASTATIN [Concomitant]
     Active Substance: ATORVASTATIN

REACTIONS (4)
  - Application site pain [Not Recovered/Not Resolved]
  - Application site vesicles [Unknown]
  - Skin warm [Not Recovered/Not Resolved]
  - Application site erythema [Not Recovered/Not Resolved]

NARRATIVE: CASE EVENT DATE: 20220603
